FAERS Safety Report 23546083 (Version 2)
Quarter: 2024Q1

REPORT INFORMATION
  Report Type: Spontaneous
  Country: CA (occurrence: CA)
  Receive Date: 20240220
  Receipt Date: 20240319
  Transmission Date: 20240410
  Serious: Yes (Other)
  Sender: FDA-Public Use
  Company Number: CA-AMERICAN REGENT INC-2024000578

PATIENT
  Age: 26 Year
  Sex: Female

DRUGS (2)
  1. VENOFER [Suspect]
     Active Substance: IRON SUCROSE
     Indication: Serum ferritin decreased
     Dosage: UNK
     Dates: start: 20230924, end: 20230924
  2. VENOFER [Suspect]
     Active Substance: IRON SUCROSE
     Indication: Ill-defined disorder

REACTIONS (5)
  - Vision blurred [Unknown]
  - Urticaria [Unknown]
  - Dizziness [Unknown]
  - Oedema peripheral [Unknown]
  - Blood pressure decreased [Unknown]

NARRATIVE: CASE EVENT DATE: 20230924
